FAERS Safety Report 7636230-5 (Version None)
Quarter: 2011Q3

REPORT INFORMATION
  Report Type: 
  Country: None (occurrence: None)
  Receive Date: 20110722
  Receipt Date: 20110722
  Transmission Date: 20111222
  Serious: Yes (Other)
  Sender: FDA-Public Use
  Company Number: None

PATIENT
  Sex: Male
  Weight: 22.3 kg

DRUGS (1)
  1. DIVALPROEX SODIUM [Suspect]
     Dosage: 1 QAM II Q PM PO
     Route: 048
     Dates: end: 20090303

REACTIONS (4)
  - TREMOR [None]
  - CONVULSION [None]
  - DRUG LEVEL FLUCTUATING [None]
  - PRODUCT SUBSTITUTION ISSUE [None]
